FAERS Safety Report 24316487 (Version 3)
Quarter: 2025Q1

REPORT INFORMATION
  Report Type: Spontaneous
  Country: US (occurrence: US)
  Receive Date: 20240913
  Receipt Date: 20250116
  Transmission Date: 20250408
  Serious: Yes (Hospitalization, Other)
  Sender: CELLTRION
  Company Number: US-CELLTRION INC.-2024US019798

PATIENT

DRUGS (1)
  1. ZYMFENTRA [Suspect]
     Active Substance: INFLIXIMAB-DYYB
     Indication: Colitis ulcerative
     Dosage: 120 MG, EVERY 2 WEEKS
     Route: 058
     Dates: start: 20240810

REACTIONS (10)
  - Oropharyngeal discomfort [Unknown]
  - Hypersensitivity [Unknown]
  - Injection site pain [Recovered/Resolved]
  - Urticaria [Unknown]
  - Illness [Unknown]
  - Lip swelling [Unknown]
  - Product dose omission issue [Not Recovered/Not Resolved]
  - Therapy interrupted [Recovered/Resolved]
  - Product availability issue [Recovered/Resolved]
  - Intentional dose omission [Unknown]

NARRATIVE: CASE EVENT DATE: 20240810
